FAERS Safety Report 4339486-X (Version None)
Quarter: 2004Q2

REPORT INFORMATION
  Report Type: 
  Country: None (occurrence: None)
  Receive Date: 20040415
  Receipt Date: 20040302
  Transmission Date: 20050107
  Serious: Yes (Other)
  Sender: FDA-Public Use
  Company Number: US-ROCHE-360705

PATIENT
  Age: 45 Year
  Sex: Female

DRUGS (2)
  1. ACCUTANE [Suspect]
     Indication: ACNE
     Route: 048
     Dates: start: 20021101, end: 20030215
  2. PROZAC [Concomitant]
     Dosage: DOSAGE REGIMEN REPORTED AS EVERYDAY.
     Route: 048
     Dates: start: 20000615

REACTIONS (3)
  - CONDITION AGGRAVATED [None]
  - DEPRESSION [None]
  - MIGRAINE [None]
